FAERS Safety Report 17413773 (Version 2)
Quarter: 2020Q1

REPORT INFORMATION
  Report Type: Spontaneous
  Country: AU (occurrence: AU)
  Receive Date: 20200213
  Receipt Date: 20200219
  Transmission Date: 20200409
  Serious: Yes (Other)
  Sender: FDA-Public Use
  Company Number: AU-MYLANLABS-2020M1016508

PATIENT
  Age: 32 Year
  Sex: Female

DRUGS (6)
  1. CANNABIDIOL [Concomitant]
     Active Substance: CANNABIDIOL
     Indication: PARTIAL SEIZURES
     Dosage: 750 MILLIGRAM, BID
     Route: 065
  2. PERAMPANEL [Concomitant]
     Active Substance: PERAMPANEL
     Indication: PARTIAL SEIZURES
     Dosage: 2 MILLIGRAM, QD
     Route: 065
  3. SODIUM VALPROATE [Concomitant]
     Active Substance: VALPROATE SODIUM
     Indication: PARTIAL SEIZURES
     Dosage: 1.5 MILLIGRAM, BID
     Route: 065
  4. DEXAMETHASONE. [Suspect]
     Active Substance: DEXAMETHASONE
     Indication: PARTIAL SEIZURES
     Dosage: 4-8 MG PER DAY
     Route: 065
     Dates: start: 201711
  5. ZONISAMIDE. [Concomitant]
     Active Substance: ZONISAMIDE
     Indication: PARTIAL SEIZURES
     Dosage: 25 MILLIGRAM, BID
     Route: 065
  6. LEVETIRACETAM. [Concomitant]
     Active Substance: LEVETIRACETAM
     Indication: PARTIAL SEIZURES
     Dosage: 1.5 GRAM, BID
     Route: 065

REACTIONS (4)
  - Treatment failure [Unknown]
  - Weight increased [Unknown]
  - Fluid retention [Unknown]
  - Off label use [Unknown]
